FAERS Safety Report 4430566-7 (Version None)
Quarter: 2004Q3

REPORT INFORMATION
  Report Type: 
  Country: None (occurrence: None)
  Receive Date: 20040818
  Receipt Date: 20040803
  Transmission Date: 20050211
  Serious: Yes (Hospitalization)
  Sender: FDA-Public Use
  Company Number: 236940

PATIENT
  Age: 78 Year
  Sex: Female

DRUGS (11)
  1. ACTRAPID HM (GE) PENFILL (INSULIN HUMAN) SOLUTION FOR INJECTION, 100IU [Suspect]
     Indication: DIABETES MELLITUS INSULIN-DEPENDENT
     Dosage: 48 IU, QD, SUBCUTANEOUS
     Route: 058
     Dates: start: 20030620, end: 20030922
  2. PROTAPHANE PENFILL (INSULIN HUMAN ) SUSPENSION FOR INJECTION, 100IU/ML [Suspect]
     Indication: DIABETES MELLITUS INSULIN-DEPENDENT
     Dosage: 14 IU, QD, SUBCUTANEOUS
     Route: 058
     Dates: start: 20030620, end: 20030920
  3. ARLEVERT [Concomitant]
  4. BISOPROLOL FUMARATE [Concomitant]
  5. DELIX [Concomitant]
  6. FUROSEMIDE [Concomitant]
  7. LEVODOPA [Concomitant]
  8. PARKOTIL [Concomitant]
  9. AMANTADINE HCL [Concomitant]
  10. SIOFOR [Concomitant]
  11. SOLIAN [Concomitant]

REACTIONS (8)
  - COLD SWEAT [None]
  - CONFUSIONAL STATE [None]
  - ELECTROENCEPHALOGRAM ABNORMAL [None]
  - EPILEPSY [None]
  - FALL [None]
  - HAEMORRHAGE [None]
  - PALLOR [None]
  - SHOCK HYPOGLYCAEMIC [None]
